FAERS Safety Report 6739044-3 (Version None)
Quarter: 2010Q2

REPORT INFORMATION
  Report Type: 
  Country: None (occurrence: None)
  Receive Date: 20100524
  Receipt Date: 20100512
  Transmission Date: 20101027
  Serious: Yes (Life-Threatening)
  Sender: FDA-Public Use
  Company Number: NO-ELI_LILLY_AND_COMPANY-NO201005003884

PATIENT
  Sex: Male

DRUGS (9)
  1. ZYPREXA [Suspect]
     Indication: SEDATION
     Dosage: 5 MG, DAILY (1/D)
     Route: 048
     Dates: end: 20090401
  2. SELEXID [Concomitant]
     Dosage: 400 MG, DAILY (1/D)
     Route: 048
  3. LACTULOSE [Concomitant]
     Indication: HEPATIC FAILURE
     Dosage: 30 ML, DAILY (1/D)
     Route: 048
  4. PARACET [Concomitant]
     Dosage: 1 G, DAILY (1/D)
     Route: 048
  5. NEXIUM [Concomitant]
     Dosage: 40 MG, DAILY (1/D)
     Route: 048
  6. TRAMADOL HCL [Concomitant]
     Indication: PAIN
     Dosage: 50 MG, DAILY (1/D)
     Route: 048
  7. LAXOBERAL [Concomitant]
     Dosage: 10 D/F, WEEKLY (1/W)
     Route: 048
  8. MAGNESIUM CITRATE [Concomitant]
     Indication: BLOOD MAGNESIUM DECREASED
     Dosage: 120 MG, DAILY (1/D)
     Route: 048
  9. MAGNESIUM LACTATE [Concomitant]
     Indication: BLOOD MAGNESIUM DECREASED
     Dosage: 120 MG, DAILY (1/D)
     Route: 048

REACTIONS (4)
  - AMMONIA INCREASED [None]
  - COMA HEPATIC [None]
  - OFF LABEL USE [None]
  - RED BLOOD CELL SEDIMENTATION RATE INCREASED [None]
